FAERS Safety Report 5319401-2 (Version None)
Quarter: 2007Q2

REPORT INFORMATION
  Report Type: 
  Country: None (occurrence: None)
  Receive Date: 20070508
  Receipt Date: 20070507
  Transmission Date: 20071010
  Serious: Yes (Other)
  Sender: FDA-Public Use
  Company Number: DE-BRISTOL-MYERS SQUIBB COMPANY-13708888

PATIENT
  Sex: Female

DRUGS (8)
  1. COUMADIN [Suspect]
     Indication: ATRIAL FIBRILLATION
  2. CORTISONE ACETATE [Suspect]
     Dates: end: 20070504
  3. AMIODARONE HCL [Concomitant]
  4. METOPROLOL SUCCINATE [Concomitant]
  5. OMEPRAZOLE [Concomitant]
  6. SPIRONOLACTONE [Concomitant]
  7. TORSEMIDE [Concomitant]
  8. VALSARTAN [Concomitant]

REACTIONS (4)
  - ANXIETY [None]
  - DIABETES MELLITUS [None]
  - INSOMNIA [None]
  - PERICARDIAL EFFUSION [None]
